FAERS Safety Report 21719905 (Version 1)
Quarter: 2022Q4

REPORT INFORMATION
  Report Type: Other
  Country: US (occurrence: US)
  Receive Date: 20221213
  Receipt Date: 20221213
  Transmission Date: 20230113
  Serious: Yes (Other)
  Sender: FDA-Public Use
  Company Number: US-HLS-202104409

PATIENT
  Age: 60 Year
  Sex: Female

DRUGS (6)
  1. CLOZAPINE [Suspect]
     Active Substance: CLOZAPINE
     Indication: Schizoaffective disorder
     Dosage: CLOZAPINE STARTED WITH 25 MG ORALLY DAILY ORALLY AND WAS TITRATED TO 150 MG ORALLY BID.
     Route: 048
  2. FILGRASTIM [Concomitant]
     Active Substance: FILGRASTIM
     Indication: Agranulocytosis
     Route: 065
  3. VALPROIC ACID [Concomitant]
     Active Substance: VALPROIC ACID
     Indication: Product used for unknown indication
     Route: 065
  4. polyethelyne glycol [Concomitant]
     Indication: Product used for unknown indication
     Route: 065
  5. DOCUSATE [Concomitant]
     Active Substance: DOCUSATE
     Indication: Product used for unknown indication
     Route: 065
  6. AMLODIPINE [Concomitant]
     Active Substance: AMLODIPINE BESYLATE
     Indication: Product used for unknown indication
     Route: 065

REACTIONS (8)
  - Cellulitis [Unknown]
  - Diarrhoea [Unknown]
  - Insomnia [Unknown]
  - Pyrexia [Recovered/Resolved]
  - Leukopenia [Unknown]
  - Nausea [Unknown]
  - Neutropenia [Recovering/Resolving]
  - Oropharyngeal pain [Unknown]
